FAERS Safety Report 8850529 (Version 2)
Quarter: 2012Q4

REPORT INFORMATION
  Report Type: 
  Country: NO (occurrence: NO)
  Receive Date: 20121019
  Receipt Date: 20121109
  Transmission Date: 20130627
  Serious: Yes (Life-Threatening, Hospitalization)
  Sender: FDA-Public Use
  Company Number: NO-ROCHE-1147251

PATIENT
  Sex: Male

DRUGS (7)
  1. MABTHERA [Suspect]
     Indication: WALDENSTROM^S MACROGLOBULINAEMIA
     Route: 050
     Dates: start: 20110616
  2. CYCLOPHOSPHAMIDE [Concomitant]
     Dosage: LAST DOSE WAS GIVEN IN SEP/2009
     Route: 050
  3. CYCLOPHOSPHAMIDE [Concomitant]
     Dosage: LAST DOSE WAS GIVEN IN SEP/2009
     Route: 050
  4. CYCLOPHOSPHAMIDE [Concomitant]
     Dosage: LAST DOSE WAS GIVEN IN SEP/2009
     Route: 050
  5. CYCLOPHOSPHAMIDE [Concomitant]
     Dosage: LAST DOSE WAS GIVEN IN SEP/2009
     Route: 050
  6. VINCRISTINE [Concomitant]
     Dosage: LAST DOSE WAS GIVEN IN SEP/2009
     Route: 050
  7. PREDNISONE [Concomitant]
     Dosage: LAST DOSE WAS GIVEN IN SEP/2009
     Route: 050

REACTIONS (1)
  - Cardiac arrest [Recovered/Resolved]
